FAERS Safety Report 8110936-6 (Version None)
Quarter: 2012Q1

REPORT INFORMATION
  Report Type: 
  Country: None (occurrence: None)
  Receive Date: 20120203
  Receipt Date: 20110318
  Transmission Date: 20120608
  Serious: Yes (Other)
  Sender: FDA-Public Use
  Company Number: US-GLAXOSMITHKLINE-A0884282A

PATIENT
  Age: 49 Year
  Sex: Male

DRUGS (6)
  1. LITHIUM CARBONATE [Concomitant]
  2. DILTIAZEM HCL [Concomitant]
  3. MAXZIDE [Concomitant]
  4. LAMICTAL [Suspect]
     Indication: PRODUCT USED FOR UNKNOWN INDICATION
     Dosage: 100MG THREE TIMES PER DAY
     Route: 048
  5. INDERAL [Concomitant]
  6. LISINOPRIL [Concomitant]

REACTIONS (2)
  - STEVENS-JOHNSON SYNDROME [None]
  - DRUG HYPERSENSITIVITY [None]
